FAERS Safety Report 7057511-2 (Version None)
Quarter: 2010Q4

REPORT INFORMATION
  Report Type: 
  Country: None (occurrence: None)
  Receive Date: 20101022
  Receipt Date: 20101015
  Transmission Date: 20110411
  Serious: Yes (Death, Other)
  Sender: FDA-Public Use
  Company Number: PHHY2010JP70005

PATIENT
  Sex: Female

DRUGS (5)
  1. DIOVAN [Suspect]
     Indication: HYPERTENSION
     Dosage: 40 MG, QD
     Route: 048
     Dates: start: 20081011, end: 20100226
  2. KNORAMIN L [Concomitant]
     Indication: HYPERTENSION
     Dosage: 40 MG
     Route: 048
  3. LASIX [Concomitant]
     Dosage: 80 MG
     Route: 048
  4. ITOROL [Concomitant]
     Dosage: 40 MG
  5. CALTINE [Concomitant]
     Dosage: 1.5 G
     Route: 048

REACTIONS (3)
  - BLOOD PRESSURE DIASTOLIC DECREASED [None]
  - GENERAL PHYSICAL HEALTH DETERIORATION [None]
  - MARASMUS [None]
